FAERS Safety Report 4512393-5 (Version None)
Quarter: 2004Q4

REPORT INFORMATION
  Report Type: 
  Country: None (occurrence: None)
  Receive Date: 20041123
  Receipt Date: 20041108
  Transmission Date: 20050328
  Serious: Yes (Death)
  Sender: FDA-Public Use
  Company Number: 2004-BP-11374RO

PATIENT
  Age: 36 Week
  Sex: 0

DRUGS (3)
  1. AZATHIOPRINE [Suspect]
     Indication: DRUG EXPOSURE DURING PREGNANCY
     Dosage: 250 MG QD
  2. PREDNISOLONE [Concomitant]
     Indication: DRUG EXPOSURE DURING PREGNANCY
     Dosage: 7.5 MG  QD
  3. CLOMID [Suspect]
     Indication: DRUG EXPOSURE DURING PREGNANCY

REACTIONS (8)
  - ABORTION SPONTANEOUS [None]
  - ANOVULATORY CYCLE [None]
  - DRUG EXPOSURE DURING PREGNANCY [None]
  - DRUG INEFFECTIVE [None]
  - INFERTILITY [None]
  - PREGNANCY [None]
  - STILLBIRTH [None]
  - UNINTENDED PREGNANCY [None]
